FAERS Safety Report 4638842-X (Version None)
Quarter: 2005Q2

REPORT INFORMATION
  Report Type: 
  Country: None (occurrence: None)
  Receive Date: 20050419
  Receipt Date: 20050409
  Transmission Date: 20051028
  Serious: Yes (Other)
  Sender: FDA-Public Use
  Company Number: PHEH2005US04194

PATIENT
  Age: 56 Year
  Sex: Female

DRUGS (5)
  1. LOTREL [Suspect]
     Indication: HYPERTENSION
     Dates: start: 20050201, end: 20050301
  2. DIURETICS [Suspect]
     Dates: end: 20050301
  3. ALPRAZOLAM [Concomitant]
     Indication: ANXIETY
     Dosage: UNK
  4. COENZYME Q10 [Concomitant]
  5. GARLIC [Concomitant]

REACTIONS (7)
  - ASTHMA [None]
  - COUGH [None]
  - DYSPNOEA [None]
  - FEELING ABNORMAL [None]
  - MUSCLE SPASMS [None]
  - RASH [None]
  - URTICARIA [None]
